FAERS Safety Report 12971297 (Version 1)
Quarter: 2016Q4

REPORT INFORMATION
  Report Type: Spontaneous
  Country: US (occurrence: US)
  Receive Date: 20161123
  Receipt Date: 20161123
  Transmission Date: 20170207
  Serious: No
  Sender: FDA-Public Use
  Company Number: US-JAZZ-2016-US-019724

PATIENT
  Sex: Male

DRUGS (44)
  1. XYREM [Suspect]
     Active Substance: SODIUM OXYBATE
     Indication: NARCOLEPSY
     Dosage: 2.25 G, BID
     Route: 048
     Dates: start: 201307
  2. REQUIP [Concomitant]
     Active Substance: ROPINIROLE HYDROCHLORIDE
  3. CELEBREX [Concomitant]
     Active Substance: CELECOXIB
  4. STELARA [Concomitant]
     Active Substance: USTEKINUMAB
  5. ALLEGRA ALLERGY [Concomitant]
     Active Substance: FEXOFENADINE HYDROCHLORIDE
  6. OTEZLA [Concomitant]
     Active Substance: APREMILAST
  7. LEXAPRO [Concomitant]
     Active Substance: ESCITALOPRAM OXALATE
  8. TAMSULOSIN HCL [Concomitant]
     Active Substance: TAMSULOSIN
  9. COSENTYX [Concomitant]
     Active Substance: SECUKINUMAB
  10. DIFLORASONE [Concomitant]
     Active Substance: DIFLORASONE DIACETATE
  11. XOLAIR [Concomitant]
     Active Substance: OMALIZUMAB
  12. TYLENOL ACHES + STRAINS [Concomitant]
  13. VITAMIN C [Concomitant]
     Active Substance: ASCORBIC ACID
  14. WELLBUTRIN [Concomitant]
     Active Substance: BUPROPION HYDROCHLORIDE
  15. LEVOXYL [Concomitant]
     Active Substance: LEVOTHYROXINE SODIUM
  16. METHOTREXATE. [Concomitant]
     Active Substance: METHOTREXATE
  17. NAPROXEN. [Concomitant]
     Active Substance: NAPROXEN
  18. NASONEX [Concomitant]
     Active Substance: MOMETASONE FUROATE
  19. NIFEDIPINE. [Concomitant]
     Active Substance: NIFEDIPINE
  20. VICODIN [Concomitant]
     Active Substance: ACETAMINOPHEN\HYDROCODONE BITARTRATE
  21. TRAMADOL HCL [Concomitant]
     Active Substance: TRAMADOL HYDROCHLORIDE
  22. ASPIRIN EC [Concomitant]
     Active Substance: ASPIRIN
  23. PROVENTIL HFA                      /00139501/ [Concomitant]
  24. ENBREL [Concomitant]
     Active Substance: ETANERCEPT
  25. CALCIPOTRIENE. [Concomitant]
     Active Substance: CALCIPOTRIENE
  26. XYZAL [Concomitant]
     Active Substance: LEVOCETIRIZINE DIHYDROCHLORIDE
  27. IMITREX [Concomitant]
     Active Substance: SUMATRIPTAN SUCCINATE
  28. PROPRANOLOL [Concomitant]
     Active Substance: PROPRANOLOL\PROPRANOLOL HYDROCHLORIDE
  29. SYMBICORT [Concomitant]
     Active Substance: BUDESONIDE\FORMOTEROL FUMARATE DIHYDRATE
  30. FERROUS SULFATE. [Concomitant]
     Active Substance: FERROUS SULFATE
  31. EPIPEN [Concomitant]
     Active Substance: EPINEPHRINE
  32. MELOXICAM. [Concomitant]
     Active Substance: MELOXICAM
  33. NUVIGIL [Concomitant]
     Active Substance: ARMODAFINIL
  34. LEVOTHYROXINE. [Concomitant]
     Active Substance: LEVOTHYROXINE
  35. FOLIC ACID. [Concomitant]
     Active Substance: FOLIC ACID
  36. MODAFINIL. [Concomitant]
     Active Substance: MODAFINIL
  37. ZYRTEC [Concomitant]
     Active Substance: CETIRIZINE HYDROCHLORIDE
  38. VITAMIN E AL [Concomitant]
  39. CORDRAN [Concomitant]
     Active Substance: FLURANDRENOLIDE
  40. NEUPRO [Concomitant]
     Active Substance: ROTIGOTINE
  41. FLEXERIL [Concomitant]
     Active Substance: CYCLOBENZAPRINE HYDROCHLORIDE
  42. LORAZEPAM. [Concomitant]
     Active Substance: LORAZEPAM
  43. PROVENTIL HFA                      /00139501/ [Concomitant]
  44. NEXIUM [Concomitant]
     Active Substance: ESOMEPRAZOLE MAGNESIUM

REACTIONS (1)
  - Neuropathy peripheral [Recovering/Resolving]
